FAERS Safety Report 7236096-1 (Version None)
Quarter: 2011Q1

REPORT INFORMATION
  Report Type: 
  Country: None (occurrence: None)
  Receive Date: 20110110
  Receipt Date: 20101228
  Transmission Date: 20110831
  Serious: Yes (Other)
  Sender: FDA-Public Use
  Company Number: USA/USA/10/0017018

PATIENT
  Age: 71 Year
  Sex: Female

DRUGS (1)
  1. RANIDITINE TABLETS 150 MG OTC (RANITIDINE HYDROCHLORIDE) [Suspect]
     Indication: GASTROOESOPHAGEAL REFLUX DISEASE
     Dosage: 150 MCG, UP TO 3 TIMES A DAY, ORAL
     Route: 048

REACTIONS (1)
  - PNEUMONIA [None]
